FAERS Safety Report 5609670-3 (Version None)
Quarter: 2008Q1

REPORT INFORMATION
  Report Type: 
  Country: None (occurrence: None)
  Receive Date: 20080131
  Receipt Date: 20070207
  Transmission Date: 20080703
  Serious: No
  Sender: FDA-Public Use
  Company Number: US-BAYER-200710448BCC

PATIENT
  Age: 21 Year
  Sex: Female
  Weight: 102 kg

DRUGS (1)
  1. ALEVE COLD AND SINUS [Suspect]
     Indication: DRUG USE FOR UNKNOWN INDICATION
     Dosage: TOTAL DAILY DOSE: 220 MG  UNIT DOSE: 220 MG
     Route: 048
     Dates: start: 20070207

REACTIONS (2)
  - INITIAL INSOMNIA [None]
  - SOMNOLENCE [None]
